FAERS Safety Report 8202874-5 (Version None)
Quarter: 2012Q1

REPORT INFORMATION
  Report Type: 
  Country: None (occurrence: None)
  Receive Date: 20120312
  Receipt Date: 20120312
  Transmission Date: 20120608
  Serious: No
  Sender: FDA-Public Use
  Company Number: None

PATIENT
  Sex: Female

DRUGS (1)
  1. NYSTATIN [Suspect]
     Dosage: 2 TABLETS
     Route: 048
     Dates: start: 20110901, end: 20120309

REACTIONS (1)
  - VULVOVAGINAL MYCOTIC INFECTION [None]
